FAERS Safety Report 11749561 (Version 1)
Quarter: 2015Q4

REPORT INFORMATION
  Report Type: Spontaneous
  Country: DE (occurrence: DE)
  Receive Date: 20151118
  Receipt Date: 20151118
  Transmission Date: 20160304
  Serious: Yes (Other)
  Sender: FDA-Public Use
  Company Number: DE-ACTAVIS-2015-24345

PATIENT
  Age: 25 Year
  Sex: Male
  Weight: 84 kg

DRUGS (1)
  1. FINASTERIDE (UNKNOWN) [Suspect]
     Active Substance: FINASTERIDE
     Indication: ALOPECIA
     Dosage: 1 MG, DAILY
     Route: 065
     Dates: start: 2011, end: 2013

REACTIONS (2)
  - Loss of libido [Recovered/Resolved with Sequelae]
  - Ejaculation disorder [Recovered/Resolved with Sequelae]

NARRATIVE: CASE EVENT DATE: 20131127
